FAERS Safety Report 15516618 (Version 1)
Quarter: 2018Q4

REPORT INFORMATION
  Report Type: Spontaneous
  Country: JP (occurrence: JP)
  Receive Date: 20181017
  Receipt Date: 20181017
  Transmission Date: 20190205
  Serious: Yes (Death, Other)
  Sender: FDA-Public Use
  Company Number: JP-009507513-1810JPN007166

PATIENT
  Age: 60 Year
  Sex: Male

DRUGS (2)
  1. CRESTOR [Suspect]
     Active Substance: ROSUVASTATIN CALCIUM
     Dosage: 2.5 MG
     Route: 048
     Dates: start: 201202, end: 201203
  2. ZETIA [Suspect]
     Active Substance: EZETIMIBE
     Dosage: DOSE UNKNOWN

REACTIONS (2)
  - Drug-induced liver injury [Unknown]
  - Hepatitis fulminant [Fatal]

NARRATIVE: CASE EVENT DATE: 20120327
